FAERS Safety Report 7235283-6 (Version None)
Quarter: 2011Q1

REPORT INFORMATION
  Report Type: 
  Country: None (occurrence: None)
  Receive Date: 20110110
  Receipt Date: 20110103
  Transmission Date: 20110831
  Serious: Yes (Hospitalization)
  Sender: FDA-Public Use
  Company Number: 018715

PATIENT
  Age: 71 Year
  Sex: Female
  Weight: 62 kg

DRUGS (4)
  1. LORTAB [Suspect]
     Indication: RENAL CELL CARCINOMA
  2. LABETALOL HCL [Suspect]
  3. LISINOPRIL [Suspect]
  4. SUNITINIB MALATE [Suspect]
     Indication: RENAL CELL CARCINOMA
     Dosage: (ORAL)
     Route: 048
     Dates: start: 20100704, end: 20100706

REACTIONS (10)
  - PROTEINURIA [None]
  - CONSTIPATION [None]
  - CONFUSIONAL STATE [None]
  - GENERAL PHYSICAL HEALTH DETERIORATION [None]
  - METASTASES TO KIDNEY [None]
  - VOMITING [None]
  - PLATELET COUNT INCREASED [None]
  - BONE MARROW FAILURE [None]
  - ABDOMINAL PAIN [None]
  - FATIGUE [None]
